FAERS Safety Report 9611081 (Version 2)
Quarter: 2013Q4

REPORT INFORMATION
  Report Type: Spontaneous
  Country: US (occurrence: US)
  Receive Date: 20131009
  Receipt Date: 20131009
  Transmission Date: 20140711
  Serious: Yes (Hospitalization, Other)
  Sender: FDA-Public Use
  Company Number: US-SAVIENT-2013S1000059

PATIENT
  Age: 46 Year
  Sex: Female
  Weight: 149.82 kg

DRUGS (16)
  1. KRYSTEXXA [Suspect]
     Indication: GOUT
     Route: 042
     Dates: start: 20130627, end: 20130627
  2. KRYSTEXXA [Suspect]
     Route: 042
     Dates: start: 20130410, end: 20130410
  3. BICILLIN-LA [Concomitant]
     Indication: CARDITIS
     Dosage: 1,200,000 UNITS PER 2 ML
     Route: 030
  4. MILOXICAM [Concomitant]
     Indication: PAIN
     Route: 048
  5. HALOBETASOL PROPIONATE [Concomitant]
     Indication: PSORIASIS
     Route: 061
  6. METOPROLOL [Concomitant]
     Indication: HYPERTENSION
     Route: 048
  7. COLCRYS [Concomitant]
     Indication: GOUT
     Route: 048
  8. ASPIRIN [Concomitant]
     Indication: CARDIOVASCULAR DISORDER
     Route: 048
  9. NITROGLYCERIN [Concomitant]
     Indication: HYPERTENSION
     Route: 060
  10. NITROGLYCERIN [Concomitant]
     Indication: CHEST PAIN
  11. JANUVIA [Concomitant]
     Indication: DIABETES MELLITUS
  12. TRIAMTERENE [Concomitant]
     Indication: PERIPHERAL VASCULAR DISORDER
     Route: 048
  13. VITAMIN D [Concomitant]
     Indication: VITAMIN SUPPLEMENTATION
     Route: 048
  14. SINGULAIR [Concomitant]
     Indication: ASTHMA
     Route: 048
  15. SOLUMEDROL [Concomitant]
     Indication: ALLERGY PROPHYLAXIS
     Route: 042
  16. BENADRYL [Concomitant]
     Indication: ALLERGY PROPHYLAXIS
     Route: 048

REACTIONS (2)
  - Anaphylactic reaction [Recovered/Resolved]
  - Therapeutic response decreased [Unknown]
